FAERS Safety Report 7201199-4 (Version None)
Quarter: 2010Q4

REPORT INFORMATION
  Report Type: 
  Country: None (occurrence: None)
  Receive Date: 20101227
  Receipt Date: 20101227
  Transmission Date: 20110411
  Serious: Yes (Other)
  Sender: FDA-Public Use
  Company Number: None

PATIENT
  Age: 45 Year
  Sex: Male
  Weight: 90.7194 kg

DRUGS (8)
  1. THALOMID [Suspect]
     Indication: BEHCET'S SYNDROME
     Dosage: 100 MG DAILY PO
     Route: 048
     Dates: start: 20101120, end: 20101207
  2. THALOMID [Suspect]
     Indication: ULCERATIVE KERATITIS
     Dosage: 100 MG DAILY PO
     Route: 048
     Dates: start: 20101120, end: 20101207
  3. ATENOLOL [Concomitant]
  4. LISINOPRIL [Concomitant]
  5. CELLCEPT [Concomitant]
  6. SIMVASTATIN [Concomitant]
  7. PRED FORTE [Concomitant]
  8. ERYTHROMYCIN [Concomitant]

REACTIONS (2)
  - HYPOAESTHESIA [None]
  - NEURALGIA [None]
